FAERS Safety Report 6564686-8 (Version None)
Quarter: 2010Q1

REPORT INFORMATION
  Report Type: 
  Country: None (occurrence: None)
  Receive Date: 20100201
  Receipt Date: 20100119
  Transmission Date: 20100710
  Serious: Yes (Hospitalization)
  Sender: FDA-Public Use
  Company Number: NSADSS2003012792

PATIENT
  Age: 17 Year
  Sex: Female

DRUGS (3)
  1. REMICADE [Suspect]
     Indication: JUVENILE ARTHRITIS
     Route: 041
  2. AZATHIOPRINE [Concomitant]
     Indication: JUVENILE ARTHRITIS
  3. PREDNISONE [Concomitant]
     Indication: JUVENILE ARTHRITIS

REACTIONS (3)
  - HISTOPLASMOSIS DISSEMINATED [None]
  - LEUKOPENIA [None]
  - THROMBOCYTOPENIA [None]
